FAERS Safety Report 9565863 (Version 1)
Quarter: 2013Q3

REPORT INFORMATION
  Report Type: Spontaneous
  Country: FR (occurrence: FR)
  Receive Date: 20130930
  Receipt Date: 20130930
  Transmission Date: 20140515
  Serious: Yes (Other)
  Sender: FDA-Public Use
  Company Number: PHHY2013FR108262

PATIENT
  Age: 90 Year
  Sex: Female

DRUGS (9)
  1. EXELON [Suspect]
     Indication: DEMENTIA ALZHEIMER^S TYPE
     Dosage: 9.5 MG, QD
     Route: 062
     Dates: start: 20130610, end: 20130730
  2. EXELON [Suspect]
     Dosage: DECREASED DOSE
     Route: 062
     Dates: start: 20130730, end: 20130808
  3. CORDARONE [Concomitant]
     Dosage: UNK UKN, UNK
  4. LASILIX [Concomitant]
     Dosage: UNK UKN, UNK
  5. KARDEGIC [Concomitant]
     Dosage: UNK UKN, UNK
  6. DIFFU K [Concomitant]
     Dosage: UNK UKN, UNK
  7. GLUCOPHAGE [Concomitant]
     Dosage: UNK UKN, UNK
  8. COLCHIMAX                               /FRA/ [Concomitant]
     Dosage: UNK UKN, UNK
  9. EFFERALGAN [Concomitant]
     Dosage: UNK UKN, UNK

REACTIONS (4)
  - Cough [Recovered/Resolved]
  - Bronchial obstruction [Recovered/Resolved]
  - Orthopnoea [Recovered/Resolved]
  - Oedema peripheral [Recovered/Resolved]
